FAERS Safety Report 4443262-7 (Version None)
Quarter: 2004Q3

REPORT INFORMATION
  Report Type: 
  Country: None (occurrence: None)
  Receive Date: 20040728
  Receipt Date: 20040513
  Transmission Date: 20050211
  Serious: No
  Sender: FDA-Public Use
  Company Number: USA040567492

PATIENT
  Age: 41 Year
  Sex: Female
  Weight: 80 kg

DRUGS (4)
  1. PROZAC [Suspect]
     Indication: PREMENSTRUAL SYNDROME
     Dates: end: 20010101
  2. STRATTERA [Suspect]
     Indication: ATTENTION DEFICIT/HYPERACTIVITY DISORDER
     Dosage: 80 MG/ 1 IN THE MORNING
     Dates: start: 20040429
  3. ZOLOFT [Concomitant]
  4. XANAX [Concomitant]

REACTIONS (2)
  - ANGER [None]
  - PSYCHIATRIC SYMPTOM [None]
